FAERS Safety Report 5484596-7 (Version None)
Quarter: 2007Q4

REPORT INFORMATION
  Report Type: 
  Country: None (occurrence: None)
  Receive Date: 20071012
  Receipt Date: 20071002
  Transmission Date: 20080405
  Serious: Yes (Hospitalization)
  Sender: FDA-Public Use
  Company Number: FR-PFIZER INC-2007083747

PATIENT
  Sex: Male
  Weight: 70 kg

DRUGS (6)
  1. TAHOR [Suspect]
     Route: 048
     Dates: start: 20070720, end: 20070807
  2. CASODEX [Suspect]
     Route: 048
  3. OMEPRAZOLE [Suspect]
     Route: 048
     Dates: start: 20070720, end: 20070807
  4. ENANTONE [Suspect]
     Route: 058
  5. SECTRAL [Concomitant]
  6. NITROGLYCERIN [Concomitant]

REACTIONS (3)
  - CHOLESTASIS [None]
  - LIVER DISORDER [None]
  - TRANSAMINASES INCREASED [None]
